FAERS Safety Report 18110033 (Version 2)
Quarter: 2020Q3

REPORT INFORMATION
  Report Type: Report from Study
  Country: JP (occurrence: JP)
  Receive Date: 20200804
  Receipt Date: 20200929
  Transmission Date: 20201103
  Serious: Yes (Hospitalization)
  Sender: FDA-Public Use
  Company Number: JP-REGULIS CONSULTING LTD-2088127

PATIENT
  Age: 14 Year
  Sex: Male
  Weight: 61 kg

DRUGS (40)
  1. RASURITEK [Suspect]
     Active Substance: RASBURICASE
     Route: 065
     Dates: start: 20190820, end: 20190821
  2. MIYA?BM [Concomitant]
     Active Substance: CLOSTRIDIUM BUTYRICUM SPORES STRAIN M-55
     Route: 065
     Dates: start: 20190916, end: 20191008
  3. PREDONINE [Concomitant]
     Active Substance: PREDNISOLONE
     Route: 065
     Dates: start: 20190821, end: 20190828
  4. ATARAX?P [Concomitant]
     Active Substance: HYDROXYZINE HYDROCHLORIDE
     Route: 065
     Dates: start: 20190821, end: 20190821
  5. LACTEC [Concomitant]
     Active Substance: CALCIUM CHLORIDE ANHYDROUS\POTASSIUM CHLORIDE\SODIUM CHLORIDE\SODIUM LACTATE
     Route: 065
     Dates: start: 20190822, end: 20190822
  6. RESTAMIN CORTISONE [Concomitant]
     Active Substance: DIPHENHYDRAMINE HYDROCHLORIDE\HYDROCORTISONE ACETATE\NEOMYCIN SULFATE
     Route: 065
     Dates: start: 20191006, end: 20191014
  7. MEROPENEM. [Concomitant]
     Active Substance: MEROPENEM
     Route: 065
     Dates: start: 20190921, end: 20190923
  8. RED BLOOD CELLS [Concomitant]
     Active Substance: HUMAN RED BLOOD CELL
     Route: 065
  9. GRANISETRON HYDROCHLORIDE. [Concomitant]
     Active Substance: GRANISETRON HYDROCHLORIDE
     Route: 065
     Dates: start: 20190910, end: 20191002
  10. HEPARIN [Concomitant]
     Active Substance: HEPARIN SODIUM
     Route: 065
     Dates: start: 20190820, end: 20190824
  11. HEPARINOID [Concomitant]
     Active Substance: CHONDROITIN SULFATE (BOVINE)
     Route: 065
     Dates: start: 20191005, end: 20191014
  12. CALONAL [Concomitant]
     Active Substance: ACETAMINOPHEN
     Route: 065
  13. METHYLENE BLUE INTRAVENOUS INJECTION 50MG ^DAIICHI SANKYO^ [Suspect]
     Active Substance: METHYLENE BLUE
     Indication: METHAEMOGLOBINAEMIA
     Route: 065
     Dates: start: 20190820
  14. SOLDEM 1 [Concomitant]
     Active Substance: DEXTROSE\SODIUM CHLORIDE\SODIUM LACTATE
     Route: 065
     Dates: start: 20190819, end: 20191003
  15. SEISHOKU [Concomitant]
     Active Substance: SODIUM CHLORIDE
     Route: 065
     Dates: start: 20190820, end: 20190824
  16. OMEPRAZOLE. [Concomitant]
     Active Substance: OMEPRAZOLE
     Route: 065
     Dates: start: 20190820, end: 20190825
  17. METHOTREXATE. [Concomitant]
     Active Substance: METHOTREXATE
     Route: 065
     Dates: start: 20190903, end: 20190903
  18. VITAMEDIN HYDROCHLORIDE [Concomitant]
     Route: 065
     Dates: start: 20190821, end: 20190827
  19. BENAMBAX [Concomitant]
     Active Substance: PENTAMIDINE
     Route: 065
     Dates: start: 20190823, end: 20191014
  20. MEPTIN [Concomitant]
     Active Substance: PROCATEROL HYDROCHLORIDE
     Route: 055
     Dates: start: 20190823, end: 20191014
  21. CEFTAZIDIME. [Concomitant]
     Active Substance: CEFTAZIDIME
     Route: 065
     Dates: end: 20191010
  22. DEXALTIN [Concomitant]
     Active Substance: DEXAMETHASONE
     Route: 050
     Dates: start: 20190924, end: 20191008
  23. PLATELETS [Concomitant]
     Active Substance: HUMAN PLATELET, ALLOGENIC
     Route: 065
  24. PREDONINE [Suspect]
     Active Substance: PREDNISOLONE
     Route: 065
     Dates: start: 20190820, end: 20190821
  25. UROMITEXAN [Concomitant]
     Active Substance: MESNA
     Route: 065
     Dates: start: 20190910, end: 20190930
  26. PRIMPERAN [Concomitant]
     Active Substance: METOCLOPRAMIDE HYDROCHLORIDE
     Route: 065
     Dates: start: 20190912, end: 20190912
  27. SOLDEM 3A [Concomitant]
     Active Substance: CARBOHYDRATES\POTASSIUM CHLORIDE\SODIUM CHLORIDE\SODIUM LACTATE
     Route: 065
     Dates: start: 20190913, end: 20190929
  28. GLUCOSE [Concomitant]
     Active Substance: DEXTROSE
     Route: 065
     Dates: start: 20190820, end: 20190820
  29. FUROSEMIDE. [Concomitant]
     Active Substance: FUROSEMIDE
     Route: 065
     Dates: start: 20190821, end: 20190821
  30. PURIFIED WATER [Concomitant]
     Active Substance: WATER
     Route: 065
     Dates: start: 20190823, end: 20191014
  31. PREDNISOLONE. [Suspect]
     Active Substance: PREDNISOLONE
     Route: 065
     Dates: start: 20190928, end: 20190930
  32. SOSEGON [Concomitant]
     Active Substance: PENTAZOCINE
     Route: 065
     Dates: start: 20190819, end: 20190819
  33. LEUCOVORIN. [Concomitant]
     Active Substance: LEUCOVORIN
     Route: 065
     Dates: start: 20190904, end: 20190904
  34. NONTHRON [Concomitant]
     Route: 065
     Dates: start: 20190912, end: 20190930
  35. HAPTOGLOBIN [Concomitant]
     Route: 065
     Dates: start: 20190821, end: 20190822
  36. FILGRASTIM BS [Concomitant]
     Active Substance: FILGRASTIM
     Dates: start: 20190921, end: 20191010
  37. ACELIO [Concomitant]
     Active Substance: ACETAMINOPHEN
     Route: 065
     Dates: start: 20190820, end: 20190820
  38. POTASSIUM CHLORIDE. [Concomitant]
     Active Substance: POTASSIUM CHLORIDE
     Route: 065
     Dates: start: 20190821, end: 20190825
  39. BFLUID [Concomitant]
     Active Substance: AMINO ACIDS\DEXTROSE\ELECTROLYTES NOS\VITAMINS
     Route: 065
     Dates: start: 20190822, end: 20190823
  40. INTAL [Concomitant]
     Active Substance: CROMOLYN SODIUM
     Route: 055
     Dates: start: 20190823, end: 20191014

REACTIONS (3)
  - Steroid diabetes [Recovered/Resolved]
  - Haemolytic anaemia [Recovered/Resolved]
  - White blood cell count decreased [Recovered/Resolved]

NARRATIVE: CASE EVENT DATE: 20190820
